FAERS Safety Report 13415092 (Version 1)
Quarter: 2017Q2

REPORT INFORMATION
  Report Type: Report from Study
  Country: None (occurrence: BR)
  Receive Date: 20170407
  Receipt Date: 20170407
  Transmission Date: 20170830
  Serious: Yes (Death, Hospitalization, Other)
  Sender: FDA-Public Use
  Company Number: BR-ABBVIE-17K-020-1934489-00

PATIENT
  Age: 65 Year
  Sex: Male
  Weight: 74 kg

DRUGS (3)
  1. PROPRANOLOL [Concomitant]
     Active Substance: PROPRANOLOL HYDROCHLORIDE
     Indication: BLOOD PRESSURE ABNORMAL
     Route: 048
  2. HUMIRA [Suspect]
     Active Substance: ADALIMUMAB
     Indication: CROHN^S DISEASE
     Route: 058
     Dates: start: 20141006, end: 201702
  3. URSACOL [Concomitant]
     Active Substance: URSODIOL
     Indication: HEPATIC CIRRHOSIS
     Route: 048
     Dates: start: 2013

REACTIONS (16)
  - Cholangitis sclerosing [Not Recovered/Not Resolved]
  - Bile duct obstruction [Not Recovered/Not Resolved]
  - Gastric varices [Not Recovered/Not Resolved]
  - Splenomegaly [Not Recovered/Not Resolved]
  - Varices oesophageal [Not Recovered/Not Resolved]
  - Gastric varices haemorrhage [Unknown]
  - Encephalopathy [Not Recovered/Not Resolved]
  - Amnesia [Not Recovered/Not Resolved]
  - Spondylitis [Recovering/Resolving]
  - Hepatic failure [Fatal]
  - Oesophageal varices haemorrhage [Unknown]
  - Bleeding varicose vein [Unknown]
  - Jaundice [Recovering/Resolving]
  - Petit mal epilepsy [Not Recovered/Not Resolved]
  - Chronic hepatic failure [Not Recovered/Not Resolved]
  - Blood pressure abnormal [Unknown]

NARRATIVE: CASE EVENT DATE: 201508
